FAERS Safety Report 5712260-5 (Version None)
Quarter: 2008Q2

REPORT INFORMATION
  Report Type: 
  Country: None (occurrence: None)
  Receive Date: 20080421
  Receipt Date: 20080421
  Transmission Date: 20081010
  Serious: Yes (Life-Threatening)
  Sender: FDA-Public Use
  Company Number: None

PATIENT
  Age: 72 Year
  Sex: Male
  Weight: 77.1115 kg

DRUGS (5)
  1. WELLBUTRIN [Suspect]
     Indication: DEPRESSION
     Dosage: 1 PER DAY PO
     Route: 048
     Dates: start: 20080206, end: 20080212
  2. EFFEXOR [Concomitant]
  3. UNIVASC [Concomitant]
  4. ALPRAZOLAM [Concomitant]
  5. LORASEPAM [Concomitant]

REACTIONS (6)
  - CARDIAC DISORDER [None]
  - CHILLS [None]
  - DEHYDRATION [None]
  - DRUG HYPERSENSITIVITY [None]
  - PUSTULAR PSORIASIS [None]
  - SKIN EXFOLIATION [None]
